FAERS Safety Report 9729706 (Version 1)
Quarter: 2013Q4

REPORT INFORMATION
  Report Type: Spontaneous
  Country: US (occurrence: US)
  Receive Date: 20131204
  Receipt Date: 20131204
  Transmission Date: 20140711
  Serious: Yes (Hospitalization)
  Sender: FDA-Public Use
  Company Number: US-GILEAD-2009-0021732

PATIENT
  Age: 60 Year
  Sex: Female

DRUGS (5)
  1. LETAIRIS [Suspect]
     Indication: PULMONARY ARTERIAL HYPERTENSION
     Route: 048
     Dates: start: 20090214, end: 20090423
  2. FLECAINIDE [Concomitant]
  3. LISINOPRIL [Concomitant]
  4. MULTI-TABS FOR HER [Concomitant]
  5. OMEPRAZOLE [Concomitant]

REACTIONS (1)
  - Fluid overload [Recovered/Resolved]
